FAERS Safety Report 6374536-0 (Version None)
Quarter: 2009Q3

REPORT INFORMATION
  Report Type: 
  Country: None (occurrence: None)
  Receive Date: 20090924
  Receipt Date: 20090716
  Transmission Date: 20100115
  Serious: Yes (Other)
  Sender: FDA-Public Use
  Company Number: US-ASTRAZENECA-2009UW20253

PATIENT
  Age: 45 Year
  Sex: Male

DRUGS (3)
  1. SEROQUEL [Suspect]
     Route: 048
     Dates: start: 20090101
  2. LITHIUM [Concomitant]
  3. GEODON [Concomitant]

REACTIONS (1)
  - PANCREATITIS [None]
